FAERS Safety Report 8787942 (Version 1)
Quarter: 2012Q4

REPORT INFORMATION
  Report Type: Report from Study
  Country: HU (occurrence: HU)
  Receive Date: 20120914
  Receipt Date: 20120914
  Transmission Date: 20130627
  Serious: Yes (Death, Hospitalization, Other)
  Sender: FDA-Public Use
  Company Number: HU-ROCHE-1122002

PATIENT
  Sex: Female

DRUGS (1)
  1. XELODA [Suspect]
     Indication: BREAST CANCER
     Route: 048
     Dates: start: 20071013, end: 200803

REACTIONS (5)
  - Death [Fatal]
  - Asphyxia [Unknown]
  - Pneumonia [Unknown]
  - Metastases to lung [Unknown]
  - Metastases to pleura [Unknown]
